FAERS Safety Report 16817504 (Version 1)
Quarter: 2019Q3

REPORT INFORMATION
  Report Type: Spontaneous
  Country: US (occurrence: US)
  Receive Date: 20190726
  Receipt Date: 20190726
  Transmission Date: 20191005
  Serious: No
  Sender: FDA-Public Use
  Company Number: None

PATIENT
  Age: 52 Year
  Sex: Male

DRUGS (1)
  1. ENBREL [Suspect]
     Active Substance: ETANERCEPT
     Indication: ANKYLOSING SPONDYLITIS
     Dosage: OTHER
     Route: 058
     Dates: start: 20090101

REACTIONS (3)
  - Gait disturbance [None]
  - Arthralgia [None]
  - Joint range of motion decreased [None]

NARRATIVE: CASE EVENT DATE: 20190726
